FAERS Safety Report 16445903 (Version 1)
Quarter: 2019Q2

REPORT INFORMATION
  Report Type: Spontaneous
  Country: DE (occurrence: DE)
  Receive Date: 20190618
  Receipt Date: 20190618
  Transmission Date: 20190711
  Serious: Yes (Other)
  Sender: FDA-Public Use
  Company Number: DE-MYLANLABS-2019M1056011

PATIENT
  Age: 34 Year
  Sex: Female

DRUGS (2)
  1. LEPONEX [Suspect]
     Active Substance: CLOZAPINE
     Indication: PSYCHOTIC DISORDER
     Dosage: 450 MILLIGRAM, QD
     Route: 048
     Dates: start: 200203
  2. CIPRAMIL                           /00582602/ [Interacting]
     Active Substance: CITALOPRAM HYDROBROMIDE
     Indication: PSYCHOTIC DISORDER
     Dosage: UNK

REACTIONS (4)
  - Drug level increased [Unknown]
  - Drug interaction [Recovering/Resolving]
  - Salivary hypersecretion [Not Recovered/Not Resolved]
  - Seizure [Recovered/Resolved]
